FAERS Safety Report 7183813-5 (Version None)
Quarter: 2010Q4

REPORT INFORMATION
  Report Type: 
  Country: None (occurrence: None)
  Receive Date: 20101210
  Receipt Date: 20101129
  Transmission Date: 20110411
  Serious: Yes (Hospitalization)
  Sender: FDA-Public Use
  Company Number: 014136

PATIENT
  Sex: Female
  Weight: 95 kg

DRUGS (6)
  1. CIMZIA [Suspect]
     Indication: RHEUMATOID ARTHRITIS
     Dosage: (200 MG 1X/2 WEEKS SUBCUTANEOUS)
     Route: 058
     Dates: start: 20100506
  2. PREDNISONE [Concomitant]
  3. ARTHROTEC /00372302/ [Concomitant]
  4. VENTOLIN [Concomitant]
  5. ADVAIR [Concomitant]
  6. DIOVAN [Concomitant]

REACTIONS (3)
  - ABDOMINAL PAIN UPPER [None]
  - HAEMATOCHEZIA [None]
  - NAUSEA [None]
